FAERS Safety Report 13582832 (Version 1)
Quarter: 2017Q2

REPORT INFORMATION
  Report Type: Report from Study
  Country: US (occurrence: US)
  Receive Date: 20170525
  Receipt Date: 20170525
  Transmission Date: 20170830
  Serious: Yes (Life-Threatening, Hospitalization, Other)
  Sender: FDA-Public Use
  Company Number: PHHO2013US017373

PATIENT
  Age: 15 Year
  Sex: Male
  Weight: 62 kg

DRUGS (7)
  1. PEGASPARGASE [Suspect]
     Active Substance: PEGASPARGASE
     Indication: ACUTE LYMPHOCYTIC LEUKAEMIA
     Dosage: 2500 IU/M2, CYCLIC, DAYS 22 AND 64 (1594 IU TOTAL ADMINISTERED DOSE)
     Route: 030
     Dates: end: 20121231
  2. CYTARABINE. [Suspect]
     Active Substance: CYTARABINE
     Indication: ACUTE LYMPHOCYTIC LEUKAEMIA
     Dosage: 75 MG/M2, CYCLIC, DAYS 8-11, 15-18, 50-53 AND 57-60 (2000 MG TOTAL ADMINISTERED DOSE)
     Route: 042
     Dates: end: 20130307
  3. NELARABINE [Suspect]
     Active Substance: NELARABINE
     Indication: ACUTE LYMPHOCYTIC LEUKAEMIA
     Dosage: 650 MG/M2, CYCLIC, OVER 60 MIN, DAYS 1-5 AND 43-47 (10875 MG TOTAL ADMINISTERED DOSE)
     Route: 042
     Dates: start: 20121207, end: 20130220
  4. CYCLOPHOSPHAMIDE. [Suspect]
     Active Substance: CYCLOPHOSPHAMIDE
     Indication: ACUTE LYMPHOCYTIC LEUKAEMIA
     Dosage: 1000 MG/M2, CYCLIC, OVER 30 MIN, DAYS 8 AND 50 (3350 MG TOTAL ADMINISTERED DOSE)
     Route: 042
     Dates: end: 20130224
  5. METHOTREXATE. [Suspect]
     Active Substance: METHOTREXATE
     Indication: ACUTE LYMPHOCYTIC LEUKAEMIA
     Dosage: 8-15 MG (AGE-BASED DOSING) CYCLIC, DAYS 15, 22 AND 57 AND 64 (60 MG TOTAL ADMINISTERED DOSE)
     Route: 037
     Dates: end: 20130311
  6. VINCRISTINE SULPHATE [Suspect]
     Active Substance: VINCRISTINE SULFATE
     Indication: ACUTE LYMPHOCYTIC LEUKAEMIA
     Dosage: 1.5 MG/M2, CYCLIC, OVER 1 MIN, DAYS 22, 29, 64 AND 71 (8 MG TOTAL ADMINISTERED DOSE)
     Route: 042
     Dates: end: 20130318
  7. MERCAPTOPURINE. [Suspect]
     Active Substance: MERCAPTOPURINE
     Indication: ACUTE LYMPHOCYTIC LEUKAEMIA
     Dosage: 60 MG/M2, CYCLIC, DAYS 8-21 AND 50-63 (2645.5 MG TOTAL ADMINISTERED DOSE)
     Route: 048
     Dates: end: 20130310

REACTIONS (9)
  - Hyperglycaemia [Recovered/Resolved]
  - Hyponatraemia [Recovered/Resolved]
  - Hypotension [Recovered/Resolved]
  - Sepsis [Recovered/Resolved]
  - Anaphylactic reaction [Recovered/Resolved]
  - Pain [Recovered/Resolved]
  - Neutropenic colitis [Recovered/Resolved]
  - Colitis [Recovered/Resolved]
  - Hypoxia [Recovered/Resolved]

NARRATIVE: CASE EVENT DATE: 20121208
